FAERS Safety Report 10174090 (Version 1)
Quarter: 2014Q2

REPORT INFORMATION
  Report Type: Spontaneous
  Country: None (occurrence: None)
  Receive Date: 20140514
  Receipt Date: 20140514
  Transmission Date: 20141212
  Serious: Yes (Disabling)
  Sender: FDA-Public Use
  Company Number: None

PATIENT
  Age: 39 Year
  Sex: Female
  Weight: 60 kg

DRUGS (1)
  1. NYTOL [Suspect]
     Indication: SLEEP DISORDER THERAPY
     Dosage: 2 TABLETS, ONCE DAILY, TAKEN BY MOUTH
     Route: 048
     Dates: start: 20140421, end: 20140508

REACTIONS (4)
  - Eczema [None]
  - Pruritus [None]
  - Blister [None]
  - Pruritus [None]
